FAERS Safety Report 7439810-5 (Version None)
Quarter: 2011Q2

REPORT INFORMATION
  Report Type: 
  Country: None (occurrence: None)
  Receive Date: 20110427
  Receipt Date: 20110421
  Transmission Date: 20111010
  Serious: Yes (Death)
  Sender: FDA-Public Use
  Company Number: US-AMGEN-USASP2011019602

PATIENT
  Age: 60 Year
  Sex: Female
  Weight: 48.526 kg

DRUGS (2)
  1. IMMUNOGLOBULINS [Concomitant]
  2. NPLATE [Suspect]
     Indication: THROMBOCYTOPENIA
     Dosage: 500 A?G, QWK
     Route: 058
     Dates: start: 20100428, end: 20110117

REACTIONS (1)
  - OVARIAN CANCER [None]
